FAERS Safety Report 12477686 (Version 1)
Quarter: 2016Q2

REPORT INFORMATION
  Report Type: Report from Study
  Country: US (occurrence: US)
  Receive Date: 20160617
  Receipt Date: 20160617
  Transmission Date: 20160815
  Serious: Yes (Hospitalization)
  Sender: FDA-Public Use
  Company Number: US-ABBVIE-16K-163-1643040-00

PATIENT
  Age: 62 Year
  Sex: Male

DRUGS (1)
  1. HUMIRA [Suspect]
     Active Substance: ADALIMUMAB
     Indication: CROHN^S DISEASE
     Route: 058
     Dates: start: 20151023

REACTIONS (7)
  - Iron deficiency anaemia [Recovering/Resolving]
  - Escherichia sepsis [Recovering/Resolving]
  - Escherichia urinary tract infection [Recovering/Resolving]
  - Colitis [Recovering/Resolving]
  - Hyperthyroidism [Recovering/Resolving]
  - Hyponatraemia [Recovered/Resolved]
  - Abdominal pain upper [Recovered/Resolved]

NARRATIVE: CASE EVENT DATE: 201605
